FAERS Safety Report 4775244-X (Version None)
Quarter: 2005Q3

REPORT INFORMATION
  Report Type: 
  Country: None (occurrence: None)
  Receive Date: 20050921
  Receipt Date: 20050810
  Transmission Date: 20060218
  Serious: Yes (Other)
  Sender: FDA-Public Use
  Company Number: US-MERCK-0508USA01963

PATIENT
  Age: 49 Year
  Sex: Male
  Weight: 78 kg

DRUGS (10)
  1. VIOXX [Suspect]
     Indication: OSTEOARTHRITIS
     Route: 048
     Dates: start: 20000101, end: 20040101
  2. VIOXX [Suspect]
     Indication: PAIN
     Route: 048
     Dates: start: 20000101, end: 20040101
  3. OXYCONTIN [Concomitant]
     Route: 048
  4. OXYCONTIN [Concomitant]
     Route: 048
  5. ELAVIL [Concomitant]
     Route: 048
  6. ELAVIL [Concomitant]
     Route: 048
  7. ZANTAC [Concomitant]
     Route: 048
  8. ZANTAC [Concomitant]
     Route: 048
  9. SOMA [Concomitant]
     Route: 048
  10. SOMA [Concomitant]
     Route: 048

REACTIONS (1)
  - MYOCARDIAL INFARCTION [None]
